FAERS Safety Report 17197912 (Version 2)
Quarter: 2020Q1

REPORT INFORMATION
  Report Type: Report from Study
  Country: US (occurrence: US)
  Receive Date: 20191225
  Receipt Date: 20200113
  Transmission Date: 20200409
  Serious: Yes (Other)
  Sender: FDA-Public Use
  Company Number: US-ROCHE-2503918

PATIENT
  Sex: Female

DRUGS (1)
  1. ACTEMRA [Suspect]
     Active Substance: TOCILIZUMAB
     Indication: RHEUMATOID ARTHRITIS
     Dosage: INJECT 162 MG SUBCUTANEOUSLY EVERY 7 DAYS
     Route: 058

REACTIONS (4)
  - Hip fracture [Unknown]
  - Peripheral swelling [Unknown]
  - Medication error [Unknown]
  - Pain [Unknown]
